FAERS Safety Report 15491857 (Version 5)
Quarter: 2022Q2

REPORT INFORMATION
  Report Type: Other
  Country: US (occurrence: None)
  Receive Date: 20181012
  Receipt Date: 20220617
  Transmission Date: 20220721
  Serious: Yes (Hospitalization, Other)
  Sender: FDA-Public Use
  Company Number: US-ROCHE-2198957

PATIENT
  Sex: Male
  Weight: 77.180 kg

DRUGS (6)
  1. AVASTIN [Suspect]
     Active Substance: BEVACIZUMAB
     Indication: Brain neoplasm
     Dosage: ONGING:NO
     Route: 042
     Dates: start: 20161011, end: 20190820
  2. AVASTIN [Suspect]
     Active Substance: BEVACIZUMAB
     Indication: Brain neoplasm malignant
     Dosage: ONGOING: NO, 19/DEC/2018,02/JAN/2019, 29/JAN/2019, 04/JUN/2019, 25/JUN/2019, 23/JUL/2019, 20/?AUG/20
     Route: 042
     Dates: start: 201606, end: 20190820
  3. AVASTIN [Suspect]
     Active Substance: BEVACIZUMAB
     Indication: Brain neoplasm malignant
  4. PRAVASTATIN [Concomitant]
     Active Substance: PRAVASTATIN
     Dosage: ONGOING YES, AT BEDTIME
     Route: 048
  5. CHONDROITIN SULFATE (BOVINE)\GLUCOSAMINE HYDROCHLORIDE [Concomitant]
     Active Substance: CHONDROITIN SULFATE (BOVINE)\GLUCOSAMINE HYDROCHLORIDE
  6. CURCUMIN [Concomitant]
     Active Substance: CURCUMIN

REACTIONS (10)
  - Deafness [Not Recovered/Not Resolved]
  - Malignant melanoma [Not Recovered/Not Resolved]
  - Cataract [Not Recovered/Not Resolved]
  - Arthralgia [Recovered/Resolved]
  - Basal cell carcinoma [Recovered/Resolved]
  - Gait disturbance [Unknown]
  - Gingival disorder [Not Recovered/Not Resolved]
  - Gastric disorder [Unknown]
  - Mental disorder [Unknown]
  - Memory impairment [Unknown]

NARRATIVE: CASE EVENT DATE: 20190101
